FAERS Safety Report 24831983 (Version 1)
Quarter: 2025Q1

REPORT INFORMATION
  Report Type: Spontaneous
  Country: CN (occurrence: CN)
  Receive Date: 20250110
  Receipt Date: 20250110
  Transmission Date: 20250409
  Serious: Yes (Hospitalization, Other)
  Sender: BAXTER
  Company Number: None

PATIENT
  Age: 23 Year
  Sex: Female

DRUGS (3)
  1. IFOSFAMIDE [Suspect]
     Active Substance: IFOSFAMIDE
     Indication: Bone cancer
     Route: 041
     Dates: start: 20240827, end: 20240830
  2. IFOSFAMIDE [Suspect]
     Active Substance: IFOSFAMIDE
     Indication: Ewing-like sarcoma
  3. IFOSFAMIDE [Suspect]
     Active Substance: IFOSFAMIDE
     Indication: Chemotherapy

REACTIONS (4)
  - Bone cancer [Unknown]
  - Ewing-like sarcoma [Unknown]
  - Condition aggravated [Unknown]
  - Myelosuppression [Unknown]

NARRATIVE: CASE EVENT DATE: 20240831
